FAERS Safety Report 8848087 (Version 1)
Quarter: 2012Q4

REPORT INFORMATION
  Report Type: 
  Country: US (occurrence: US)
  Receive Date: 20121018
  Receipt Date: 20121018
  Transmission Date: 20130627
  Serious: Yes (Other)
  Sender: FDA-Public Use
  Company Number: US-ROCHE-1132883

PATIENT
  Sex: Male

DRUGS (3)
  1. PROTROPIN [Suspect]
     Indication: DWARFISM
     Route: 058
     Dates: start: 19900912
  2. PROTROPIN [Suspect]
     Indication: GROWTH HORMONE DEFICIENCY
     Dosage: dilute with 2 ml
     Route: 058
  3. LUPRON DEPOT [Concomitant]
     Route: 065
     Dates: start: 199903, end: 199910

REACTIONS (4)
  - Bronchitis [Recovered/Resolved]
  - Wheezing [Unknown]
  - Tooth infection [Unknown]
  - Nasopharyngitis [Unknown]
